FAERS Safety Report 8860244 (Version 2)
Quarter: 2013Q4

REPORT INFORMATION
  Report Type: Spontaneous
  Country: US (occurrence: US)
  Receive Date: 20121025
  Receipt Date: 20131104
  Transmission Date: 20140711
  Serious: Yes (Other)
  Sender: FDA-Public Use
  Company Number: PHEH2012US020804

PATIENT
  Age: 74 Year
  Sex: 0

DRUGS (1)
  1. ZOMETA [Suspect]
     Dosage: 4 MG, ONCE IN 4 WEEKS
     Route: 042
     Dates: start: 20100831

REACTIONS (1)
  - Pulmonary embolism [Unknown]
